FAERS Safety Report 6594125-2 (Version None)
Quarter: 2010Q1

REPORT INFORMATION
  Report Type: 
  Country: None (occurrence: None)
  Receive Date: 20100222
  Receipt Date: 20100210
  Transmission Date: 20100710
  Serious: Yes (Other)
  Sender: FDA-Public Use
  Company Number: JP-PFIZER INC-2010006618

PATIENT
  Age: 28 Year
  Sex: Male

DRUGS (6)
  1. ZITHROMAC SR [Suspect]
     Indication: UPPER RESPIRATORY TRACT INFLAMMATION
     Dosage: 2 G/DAY
     Route: 048
     Dates: start: 20100104, end: 20100101
  2. DASEN [Concomitant]
     Route: 048
     Dates: start: 20100104, end: 20100108
  3. MEDICON [Concomitant]
     Route: 048
     Dates: start: 20100104, end: 20100108
  4. MUCODYNE [Concomitant]
     Route: 048
     Dates: start: 20100104, end: 20100108
  5. CALONAL [Concomitant]
     Route: 048
     Dates: start: 20100104, end: 20100108
  6. THEO-DUR [Concomitant]
     Route: 048
     Dates: start: 20100104, end: 20100108

REACTIONS (4)
  - DIARRHOEA [None]
  - MALLORY-WEISS SYNDROME [None]
  - NAUSEA [None]
  - VOMITING [None]
